FAERS Safety Report 22061589 (Version 1)
Quarter: 2023Q1

REPORT INFORMATION
  Report Type: Report from Study
  Country: ES (occurrence: ES)
  Receive Date: 20230304
  Receipt Date: 20230304
  Transmission Date: 20230417
  Serious: Yes (Hospitalization, Other)
  Sender: FDA-Public Use
  Company Number: ES-ABBVIE-4149559

PATIENT
  Sex: Male

DRUGS (10)
  1. CARBIDOPA\LEVODOPA [Suspect]
     Active Substance: CARBIDOPA\LEVODOPA
     Indication: Parkinson^s disease
     Route: 050
     Dates: start: 20200206, end: 202210
  2. CARBIDOPA\LEVODOPA [Suspect]
     Active Substance: CARBIDOPA\LEVODOPA
     Dosage: INCREASE THE CONTINUOUS RATE BY 0.2 ML/H
     Route: 050
     Dates: start: 202210
  3. AMLODIPINE [Concomitant]
     Active Substance: AMLODIPINE BESYLATE
     Indication: Product used for unknown indication
     Dates: start: 2022
  4. Nolotil [Concomitant]
     Indication: Pain in extremity
     Dates: start: 202210
  5. Nolotil [Concomitant]
     Indication: Pain in extremity
     Dates: start: 202210
  6. DOXAZOSIN MESYLATE [Concomitant]
     Active Substance: DOXAZOSIN MESYLATE
     Indication: Product used for unknown indication
     Dates: start: 2022
  7. RIVOTRIL [Concomitant]
     Active Substance: CLONAZEPAM
     Indication: Product used for unknown indication
     Dates: start: 2022
  8. OLMESARTAN [Concomitant]
     Active Substance: OLMESARTAN
     Indication: Product used for unknown indication
     Dates: start: 2022
  9. FUROSEMIDE [Concomitant]
     Active Substance: FUROSEMIDE
     Indication: Product used for unknown indication
     Dates: start: 2022
  10. ESCITALOPRAN [Concomitant]
     Indication: Product used for unknown indication
     Dates: start: 2022

REACTIONS (12)
  - On and off phenomenon [Recovered/Resolved]
  - Pain in extremity [Recovered/Resolved]
  - Speech disorder [Unknown]
  - Feeling abnormal [Unknown]
  - Fall [Unknown]
  - Parkinsonian gait [Recovered/Resolved]
  - Therapeutic product effect incomplete [Not Recovered/Not Resolved]
  - Drop attacks [Unknown]
  - Fluid retention [Recovered/Resolved]
  - Freezing phenomenon [Recovered/Resolved]
  - Musculoskeletal disorder [Unknown]
  - Gait inability [Unknown]

NARRATIVE: CASE EVENT DATE: 20220101
